FAERS Safety Report 13656875 (Version 2)
Quarter: 2017Q3

REPORT INFORMATION
  Report Type: Spontaneous
  Country: US (occurrence: US)
  Receive Date: 20170615
  Receipt Date: 20170711
  Transmission Date: 20171127
  Serious: No
  Sender: FDA-Public Use
  Company Number: US-ACTELION-A-NJ2017-155323

PATIENT
  Age: 67 Year
  Sex: Female

DRUGS (2)
  1. TRACLEER [Suspect]
     Active Substance: BOSENTAN
     Indication: PULMONARY ARTERIAL HYPERTENSION
     Dosage: 125 MG, BID
     Route: 048
     Dates: start: 20040101
  2. ESBRIET [Concomitant]
     Active Substance: PIRFENIDONE
     Dosage: 3 CAPSULES, TID
     Dates: start: 20170105, end: 20170506

REACTIONS (4)
  - Nausea [Recovered/Resolved]
  - Feeling abnormal [Recovered/Resolved]
  - Dizziness [Unknown]
  - Sinus disorder [Unknown]

NARRATIVE: CASE EVENT DATE: 20170515
